FAERS Safety Report 19381410 (Version 1)
Quarter: 2021Q2

REPORT INFORMATION
  Report Type: Spontaneous
  Country: US (occurrence: US)
  Receive Date: 20210604
  Receipt Date: 20210604
  Transmission Date: 20210717
  Serious: Yes (Hospitalization)
  Sender: FDA-Public Use
  Company Number: None

PATIENT
  Age: 58 Year
  Sex: Female
  Weight: 50.3 kg

DRUGS (1)
  1. TEMOZOLOMIDE (TMZ) [Suspect]
     Active Substance: TEMOZOLOMIDE
     Indication: GASTROINTESTINAL STROMAL TUMOUR
     Route: 048
     Dates: start: 20210402

REACTIONS (3)
  - Ascites [None]
  - Pain [None]
  - Nausea [None]
